FAERS Safety Report 12301303 (Version 1)
Quarter: 2016Q2

REPORT INFORMATION
  Report Type: Spontaneous
  Country: US (occurrence: US)
  Receive Date: 20160425
  Receipt Date: 20160425
  Transmission Date: 20160815
  Serious: Yes (Hospitalization)
  Sender: FDA-Public Use
  Company Number: US-SMITH AND NEPHEW, INC-2016SMT00334

PATIENT
  Age: 68 Year
  Sex: Female
  Weight: 106.58 kg

DRUGS (4)
  1. REGRANEX [Suspect]
     Active Substance: BECAPLERMIN
     Indication: WOUND
     Dosage: UNK
     Route: 061
     Dates: start: 201603, end: 201603
  2. UNSPECIFIED BLOOD PRESSURE MEDICATIONS [Concomitant]
  3. PLAVIX [Concomitant]
     Active Substance: CLOPIDOGREL BISULFATE
  4. NOVOLOG [Concomitant]
     Active Substance: INSULIN ASPART

REACTIONS (3)
  - Leg amputation [Recovered/Resolved with Sequelae]
  - Application site discharge [Unknown]
  - Wound complication [Unknown]

NARRATIVE: CASE EVENT DATE: 2016
